FAERS Safety Report 8413510-7 (Version None)
Quarter: 2012Q2

REPORT INFORMATION
  Report Type: 
  Country: None (occurrence: None)
  Receive Date: 20120605
  Receipt Date: 20120524
  Transmission Date: 20120825
  Serious: Yes (Disabling)
  Sender: FDA-Public Use
  Company Number: VE-ROCHE-1060006

PATIENT
  Sex: Female
  Weight: 74 kg

DRUGS (8)
  1. SERTRALINE HYDROCHLORIDE [Concomitant]
     Indication: DEPRESSION
  2. METFORMIN HYDROCHLORIDE [Concomitant]
  3. CLONAZEPAM [Concomitant]
     Indication: PANIC DISORDER
  4. PEGINTERFERON ALFA-2A [Suspect]
     Indication: HEPATITIS C
     Route: 058
     Dates: start: 20120216
  5. PYRIDOSTIGMINE BROMIDE [Concomitant]
     Indication: MYASTHENIA GRAVIS
     Route: 048
     Dates: start: 20080401
  6. PANTOPRAZOLE [Concomitant]
     Indication: PROPHYLAXIS AGAINST GASTROINTESTINAL ULCER
  7. RIBAVIRIN [Concomitant]
     Indication: HEPATITIS C
     Route: 048
     Dates: start: 20120216
  8. FOLIC ACID [Concomitant]

REACTIONS (12)
  - DEPRESSION [None]
  - PYREXIA [None]
  - SYNCOPE [None]
  - HEADACHE [None]
  - ABDOMINAL PAIN [None]
  - ANAEMIA [None]
  - NAUSEA [None]
  - HYPERHIDROSIS [None]
  - MYALGIA [None]
  - LEUKOPENIA [None]
  - WEIGHT DECREASED [None]
  - DECREASED APPETITE [None]
